FAERS Safety Report 5518562-X (Version None)
Quarter: 2007Q4

REPORT INFORMATION
  Report Type: 
  Country: None (occurrence: None)
  Receive Date: 20071115
  Receipt Date: 20071107
  Transmission Date: 20080405
  Serious: Yes (Other)
  Sender: FDA-Public Use
  Company Number: PL-PFIZER INC-2007093750

PATIENT
  Age: 79 Year
  Sex: Male

DRUGS (5)
  1. CARDURA [Suspect]
     Indication: HYPERTENSION
  2. CARDURA [Suspect]
     Indication: PROSTATOMEGALY
  3. PREDUCTAL [Concomitant]
     Route: 048
  4. PENTOHEXAL [Concomitant]
     Route: 048
  5. RUTINOSCORBIN [Concomitant]
     Route: 048

REACTIONS (2)
  - BLOOD PRESSURE INCREASED [None]
  - DRUG INEFFECTIVE [None]
